FAERS Safety Report 8988533 (Version 1)
Quarter: 2012Q4

REPORT INFORMATION
  Report Type: Spontaneous
  Country: GB (occurrence: None)
  Receive Date: 20121218
  Receipt Date: 20121218
  Transmission Date: 20130627
  Serious: Yes (Other)
  Sender: FDA-Public Use
  Company Number: AUR-APL-2012-05265

PATIENT
  Age: 52 Year
  Sex: Female

DRUGS (5)
  1. GABAPENTIN [Suspect]
     Indication: CERVICAL PAIN
     Route: 048
     Dates: start: 20121113
  2. MACROGOL [Concomitant]
  3. NAPROXEN [Concomitant]
  4. OMEPRAZOLE [Concomitant]
  5. TRAMADOL [Concomitant]

REACTIONS (3)
  - Confusional state [None]
  - Euphoric mood [None]
  - Activities of daily living impaired [None]
